FAERS Safety Report 25057083 (Version 2)
Quarter: 2025Q1

REPORT INFORMATION
  Report Type: Report from Study
  Country: JP (occurrence: JP)
  Receive Date: 20250310
  Receipt Date: 20250320
  Transmission Date: 20250409
  Serious: Yes (Death)
  Sender: TEVA
  Company Number: JP-TEVA-VS-3306029

PATIENT
  Age: 57 Year
  Sex: Female

DRUGS (4)
  1. CARBOPLATIN [Suspect]
     Active Substance: CARBOPLATIN
     Indication: Ovarian epithelial cancer stage IV
     Route: 065
  2. OLAPARIB [Suspect]
     Active Substance: OLAPARIB
     Indication: Ovarian epithelial cancer stage IV
     Route: 065
  3. BEVACIZUMAB [Suspect]
     Active Substance: BEVACIZUMAB
     Indication: Ovarian epithelial cancer stage IV
     Route: 065
  4. PACLITAXEL [Suspect]
     Active Substance: PACLITAXEL
     Indication: Ovarian epithelial cancer stage IV
     Route: 065

REACTIONS (1)
  - Myelodysplastic syndrome [Fatal]
